FAERS Safety Report 7973042-7 (Version None)
Quarter: 2011Q4

REPORT INFORMATION
  Report Type: 
  Country: None (occurrence: None)
  Receive Date: 20111213
  Receipt Date: 20111208
  Transmission Date: 20120403
  Serious: Yes (Other)
  Sender: FDA-Public Use
  Company Number: DE-PFIZER INC-2011300473

PATIENT
  Age: 55 Year
  Sex: Male

DRUGS (5)
  1. AMLODIPINE BESYLATE [Suspect]
     Dosage: 10 MG, AS NEEDED
     Route: 048
  2. RASILEZ [Suspect]
     Indication: HYPERTENSION
     Dosage: 300 MG, 2X/DAY
     Route: 048
     Dates: start: 20090527, end: 20100329
  3. RASILEZ [Suspect]
     Dosage: 150 MG, 2X/DAY
     Route: 048
     Dates: start: 20100330
  4. DELIX PLUS [Concomitant]
     Indication: HYPERTENSION
     Dosage: UNK
     Dates: end: 20100526
  5. EXFORGE HCT [Suspect]
     Indication: HYPERTENSION
     Dosage: 10/12.5/160 MG 1X/DAY
     Route: 048
     Dates: start: 20100527

REACTIONS (3)
  - HERPES ZOSTER [None]
  - WEIGHT INCREASED [None]
  - OEDEMA PERIPHERAL [None]
